FAERS Safety Report 23576713 (Version 2)
Quarter: 2024Q1

REPORT INFORMATION
  Report Type: Spontaneous
  Country: JP (occurrence: JP)
  Receive Date: 20240228
  Receipt Date: 20240320
  Transmission Date: 20240410
  Serious: Yes (Death, Other)
  Sender: FDA-Public Use
  Company Number: JP-PFIZER INC-PV202400027510

PATIENT
  Age: 8 Decade
  Sex: Male

DRUGS (1)
  1. VYNDAQEL [Suspect]
     Active Substance: TAFAMIDIS MEGLUMINE
     Dosage: 80 MG, DAILY
     Route: 048

REACTIONS (2)
  - Pancreatic carcinoma [Fatal]
  - Cerebral infarction [Unknown]
